FAERS Safety Report 13943031 (Version 1)
Quarter: 2017Q3

REPORT INFORMATION
  Report Type: Spontaneous
  Country: FR (occurrence: FR)
  Receive Date: 20170906
  Receipt Date: 20170906
  Transmission Date: 20171128
  Serious: Yes (Life-Threatening, Hospitalization, Other)
  Sender: FDA-Public Use
  Company Number: FR-MYLANLABS-2017M1055719

PATIENT
  Age: 59 Year
  Sex: Male

DRUGS (4)
  1. FORLAX [Concomitant]
     Active Substance: POLYETHYLENE GLYCOL 4000
     Indication: PRODUCT USED FOR UNKNOWN INDICATION
     Dosage: UNK
  2. CLOZAPINE. [Suspect]
     Active Substance: CLOZAPINE
     Indication: PSYCHOTIC DISORDER
     Dosage: 500 MG, QD
     Route: 048
     Dates: start: 20110101, end: 20170730
  3. TRILEPTAL [Suspect]
     Active Substance: OXCARBAZEPINE
     Indication: EPILEPSY
     Dosage: 600 MG, QOD
     Route: 048
     Dates: end: 20170730
  4. LEPTICUR [Suspect]
     Active Substance: TROPATEPINE HYDROCHLORIDE
     Indication: TREMOR
     Dosage: 10 MG, QD
     Route: 048
     Dates: end: 20170730

REACTIONS (10)
  - Distal intestinal obstruction syndrome [Recovered/Resolved]
  - Neutrophil count increased [Unknown]
  - Pericarditis [Recovering/Resolving]
  - Faecal vomiting [Unknown]
  - Functional gastrointestinal disorder [Unknown]
  - Pneumonia aspiration [Unknown]
  - Agranulocytosis [Recovering/Resolving]
  - Respiratory distress [Unknown]
  - White blood cell count increased [Unknown]
  - Pericardial effusion [Unknown]

NARRATIVE: CASE EVENT DATE: 2017
